FAERS Safety Report 15101297 (Version 1)
Quarter: 2018Q3

REPORT INFORMATION
  Report Type: Spontaneous
  Country: CA (occurrence: CA)
  Receive Date: 20180703
  Receipt Date: 20180703
  Transmission Date: 20181010
  Serious: Yes (Other)
  Sender: FDA-Public Use
  Company Number: CA-TEVA-2018-CA-917421

PATIENT
  Age: 4 Year
  Sex: Female
  Weight: 17 kg

DRUGS (11)
  1. HYDROCORTISONE. [Concomitant]
     Active Substance: HYDROCORTISONE
  2. MERCAPTOPURINE. [Concomitant]
     Active Substance: MERCAPTOPURINE
  3. METHYLPREDNISOLONE. [Concomitant]
     Active Substance: METHYLPREDNISOLONE
  4. METHOTREXATE. [Concomitant]
     Active Substance: METHOTREXATE
     Route: 013
  5. VINCRISTINE SULFATE. [Concomitant]
     Active Substance: VINCRISTINE SULFATE
  6. DOXORUBICIN LIPOSOMAL [Suspect]
     Active Substance: DOXORUBICIN
     Indication: LEUKAEMIA
     Route: 042
  7. ASPARAGINASE (E.COLI) [Concomitant]
     Active Substance: ASPARAGINASE
  8. DEXAMETHASONE. [Concomitant]
     Active Substance: DEXAMETHASONE
  9. PEG?L?ASPARAGINASE [Concomitant]
     Active Substance: PEGASPARGASE
  10. PREDNISONE. [Suspect]
     Active Substance: PREDNISONE
     Indication: LEUKAEMIA
     Route: 048
  11. CYTARABINE. [Concomitant]
     Active Substance: CYTARABINE
     Route: 037

REACTIONS (1)
  - Cardiotoxicity [Unknown]
